FAERS Safety Report 17148488 (Version 1)
Quarter: 2019Q4

REPORT INFORMATION
  Report Type: Spontaneous
  Country: MY (occurrence: MY)
  Receive Date: 20191212
  Receipt Date: 20191212
  Transmission Date: 20200122
  Serious: Yes (Other)
  Sender: FDA-Public Use
  Company Number: MY-SUN PHARMACEUTICAL INDUSTRIES LTD-2019R1-230492

PATIENT
  Age: 64 Year
  Sex: Female

DRUGS (1)
  1. CERUVIN [Suspect]
     Active Substance: CLOPIDOGREL BISULFATE
     Indication: CEREBROVASCULAR ACCIDENT PROPHYLAXIS
     Dosage: 75 MILLIGRAM, DAILY
     Route: 048

REACTIONS (1)
  - Dyspnoea [Recovered/Resolved]
